FAERS Safety Report 13414223 (Version 2)
Quarter: 2017Q2

REPORT INFORMATION
  Report Type: Spontaneous
  Country: GB (occurrence: GB)
  Receive Date: 20170407
  Receipt Date: 20170407
  Transmission Date: 20170830
  Serious: Yes (Disabling)
  Sender: FDA-Public Use
  Company Number: GB-PFIZER INC-2017145609

PATIENT
  Age: 69 Year
  Sex: Female
  Weight: 75 kg

DRUGS (6)
  1. MST CONTINUS [Concomitant]
     Active Substance: MORPHINE SULFATE
     Indication: PAIN
     Dosage: 5 MG, 2X/DAY
     Route: 048
  2. PREGABALIN. [Suspect]
     Active Substance: PREGABALIN
     Indication: NEURALGIA
     Dosage: 300 MG, UNK
     Route: 048
     Dates: start: 20170212, end: 20170216
  3. IBUPROFEN. [Concomitant]
     Active Substance: IBUPROFEN
     Indication: PAIN
     Dosage: 400 MG, 3X/DAY
     Route: 048
  4. OMEPRAZOLE. [Concomitant]
     Active Substance: OMEPRAZOLE
     Indication: PROPHYLAXIS
     Dosage: 20 MG, 2X/DAY
     Route: 048
  5. IBANDRONIC ACID [Concomitant]
     Active Substance: IBANDRONIC ACID
     Indication: BREAST CANCER METASTATIC
     Dosage: 50 MG, 1X/DAY
     Route: 048
  6. PEPPERMINT LEAF [Concomitant]
     Indication: ABDOMINAL DISTENSION
     Dosage: 3 DF, 1X/DAY
     Route: 048

REACTIONS (13)
  - Irritability [Recovering/Resolving]
  - Head discomfort [Recovering/Resolving]
  - Malaise [Recovering/Resolving]
  - Peripheral swelling [Recovering/Resolving]
  - Asthenia [Recovering/Resolving]
  - Pain [Recovering/Resolving]
  - Impatience [Recovering/Resolving]
  - Back pain [Not Recovered/Not Resolved]
  - Pain in extremity [Recovering/Resolving]
  - Headache [Recovering/Resolving]
  - Balance disorder [Recovering/Resolving]
  - Thinking abnormal [Recovering/Resolving]
  - Sensory disturbance [Recovering/Resolving]

NARRATIVE: CASE EVENT DATE: 20170214
